FAERS Safety Report 23676358 (Version 1)
Quarter: 2024Q1

REPORT INFORMATION
  Report Type: Spontaneous
  Country: RU (occurrence: RU)
  Receive Date: 20240327
  Receipt Date: 20240327
  Transmission Date: 20240410
  Serious: Yes (Hospitalization, Other)
  Sender: FDA-Public Use
  Company Number: RU-MLMSERVICE-20240312-4880340-1

PATIENT
  Age: 7 Year
  Sex: Male

DRUGS (4)
  1. ETOPOSIDE [Suspect]
     Active Substance: ETOPOSIDE
     Indication: Bone marrow conditioning regimen
     Dates: start: 2022
  2. MELPHALAN [Suspect]
     Active Substance: MELPHALAN
     Indication: Bone marrow conditioning regimen
     Dates: start: 2022
  3. CYTARABINE [Suspect]
     Active Substance: CYTARABINE
     Indication: Bone marrow conditioning regimen
     Dates: start: 2022
  4. LOMUSTINE [Suspect]
     Active Substance: LOMUSTINE
     Indication: Bone marrow conditioning regimen
     Dates: start: 2022

REACTIONS (4)
  - Bone marrow failure [Recovered/Resolved]
  - Neutropenic colitis [Recovered/Resolved]
  - Toxic skin eruption [Recovered/Resolved]
  - Stomatitis [Recovered/Resolved]
